FAERS Safety Report 5621259-9 (Version None)
Quarter: 2008Q1

REPORT INFORMATION
  Report Type: 
  Country: None (occurrence: None)
  Receive Date: 20080114
  Receipt Date: 20070507
  Transmission Date: 20080703
  Serious: Yes (Hospitalization)
  Sender: FDA-Public Use
  Company Number: A03200702916

PATIENT
  Age: 68 Year
  Sex: Male

DRUGS (8)
  1. PLAVIX [Suspect]
     Dosage: 75 MG QD - ORAL
     Route: 048
     Dates: start: 20050101
  2. PLAVIX [Suspect]
     Dosage: 75 MG QD - ORAL
     Route: 048
     Dates: start: 20070101
  3. CLOPIDOGREL [Suspect]
     Dosage: 75 MG QD - ORAL
     Route: 048
     Dates: start: 20060101, end: 20070101
  4. DILTIAZEM HYDROCHLORIDE [Concomitant]
  5. SERTRALINE HYDROCHLORIDE [Concomitant]
  6. ALPRAZOLAM [Concomitant]
  7. ACETAMINOPHEN+HYDROCODONE BITARTRATE [Concomitant]
  8. ACETYLSALICYLIC ACID SRT [Concomitant]

REACTIONS (4)
  - CONTUSION [None]
  - EPISTAXIS [None]
  - ILL-DEFINED DISORDER [None]
  - LOSS OF CONSCIOUSNESS [None]
